FAERS Safety Report 20232880 (Version 1)
Quarter: 2021Q4

REPORT INFORMATION
  Report Type: Spontaneous
  Country: US (occurrence: None)
  Receive Date: 20211223
  Receipt Date: 20211223
  Transmission Date: 20220303
  Serious: No
  Sender: FDA-Public Use
  Company Number: None

PATIENT
  Age: 56 Year
  Sex: Female

DRUGS (1)
  1. NORDITROPIN [Suspect]
     Active Substance: SOMATROPIN
     Indication: Product used for unknown indication
     Dosage: OTHER QUANTITY : 1 INJECTION;?FREQUENCY : DAILY;?
     Route: 058
     Dates: start: 20211223

REACTIONS (2)
  - Product distribution issue [None]
  - Product quality issue [None]

NARRATIVE: CASE EVENT DATE: 20211223
